FAERS Safety Report 7986029-5 (Version None)
Quarter: 2011Q4

REPORT INFORMATION
  Report Type: 
  Country: None (occurrence: None)
  Receive Date: 20111216
  Receipt Date: 20101230
  Transmission Date: 20120403
  Serious: No
  Sender: FDA-Public Use
  Company Number: US-BRISTOL-MYERS SQUIBB COMPANY-15467020

PATIENT
  Age: 41 Year
  Sex: Female
  Weight: 82 kg

DRUGS (7)
  1. LORAZEPAM [Concomitant]
  2. ABILIFY [Suspect]
     Indication: DEPRESSION
     Dosage: DOSE INCREASED TO 5 MG,INTERRUPTED AND THEN RESTARTED
     Dates: start: 20091201
  3. LITHIUM [Concomitant]
  4. AMBIEN [Concomitant]
  5. LAMICTAL [Concomitant]
  6. ABILIFY [Suspect]
     Indication: BIPOLAR DISORDER
     Dosage: DOSE INCREASED TO 5 MG,INTERRUPTED AND THEN RESTARTED
     Dates: start: 20091201
  7. MIRTAZAPINE [Concomitant]

REACTIONS (1)
  - PAIN IN EXTREMITY [None]
